FAERS Safety Report 8080514-6 (Version None)
Quarter: 2012Q1

REPORT INFORMATION
  Report Type: 
  Country: None (occurrence: None)
  Receive Date: 20120130
  Receipt Date: 20120124
  Transmission Date: 20120608
  Serious: No
  Sender: FDA-Public Use
  Company Number: US-PFIZER INC-2011306406

PATIENT
  Sex: Female

DRUGS (4)
  1. AMLODIPINE [Concomitant]
     Indication: HYPERTENSION
     Dosage: UNK
     Dates: start: 20110316
  2. LIPITOR [Suspect]
     Indication: BLOOD CHOLESTEROL INCREASED
     Dosage: 20 MG 1/2 QOD
     Route: 048
     Dates: start: 20111213, end: 20111215
  3. COUMADIN [Concomitant]
     Indication: ATRIAL FIBRILLATION
     Dosage: UNK
     Dates: start: 20101201
  4. ASPIRIN [Concomitant]
     Dosage: UNK
     Dates: start: 20110923

REACTIONS (2)
  - DIZZINESS [None]
  - ABDOMINAL PAIN UPPER [None]
